FAERS Safety Report 9800292 (Version 1)
Quarter: 2014Q1

REPORT INFORMATION
  Report Type: Spontaneous
  Country: US (occurrence: US)
  Receive Date: 20140106
  Receipt Date: 20140106
  Transmission Date: 20141002
  Serious: Yes (Disabling, Other)
  Sender: FDA-Public Use
  Company Number: CHPA2013US019003

PATIENT
  Age: 76 Year
  Sex: Female

DRUGS (2)
  1. TRANSDERM SCOP [Suspect]
     Indication: VERTIGO
     Dosage: UNK
     Route: 062
     Dates: start: 201310
  2. TRANSDERM SCOP [Suspect]
     Indication: OFF LABEL USE

REACTIONS (6)
  - Dehydration [Recovered/Resolved]
  - Activities of daily living impaired [Unknown]
  - Malaise [Recovered/Resolved]
  - Gastrointestinal disorder [Recovered/Resolved]
  - Throat irritation [Recovered/Resolved]
  - Vomiting [Recovered/Resolved]
